FAERS Safety Report 9431441 (Version 1)
Quarter: 2013Q3

REPORT INFORMATION
  Report Type: Spontaneous
  Country: US (occurrence: US)
  Receive Date: 20130730
  Receipt Date: 20130730
  Transmission Date: 20140515
  Serious: Yes (Hospitalization, Other)
  Sender: FDA-Public Use
  Company Number: US-009507513-1307USA015828

PATIENT
  Sex: Female

DRUGS (3)
  1. FOSAMAX [Suspect]
     Indication: MEDICAL COUNSELLING
     Dosage: UNSPECIFIED DOSE ONCE A WEEK
     Route: 048
     Dates: start: 2004, end: 2011
  2. SYNTHROID [Concomitant]
     Dosage: LOWEST DOSE
  3. DIURETIC (UNSPECIFIED) [Concomitant]
     Dosage: LOW DOSE

REACTIONS (1)
  - Femur fracture [Recovered/Resolved]
